FAERS Safety Report 19454902 (Version 1)
Quarter: 2021Q2

REPORT INFORMATION
  Report Type: Report from Study
  Country: GB (occurrence: GB)
  Receive Date: 20210623
  Receipt Date: 20210623
  Transmission Date: 20210717
  Serious: Yes (Hospitalization)
  Sender: FDA-Public Use
  Company Number: GB-SHIRE-GB202010082

PATIENT
  Age: 54 Year
  Sex: Male
  Weight: 103 kg

DRUGS (2)
  1. ICATIBANT [Suspect]
     Active Substance: ICATIBANT ACETATE
     Indication: HEREDITARY ANGIOEDEMA WITH C1 ESTERASE INHIBITOR DEFICIENCY
     Dosage: 30 MILLIGRAM, AS REQD
     Route: 058
     Dates: start: 20171128
  2. ICATIBANT [Suspect]
     Active Substance: ICATIBANT ACETATE
     Indication: HEREDITARY ANGIOEDEMA WITH C1 ESTERASE INHIBITOR DEFICIENCY
     Dosage: 30 MILLIGRAM, AS REQD
     Route: 058
     Dates: start: 20171128

REACTIONS (1)
  - Hospitalisation [Recovered/Resolved]
